FAERS Safety Report 16299569 (Version 3)
Quarter: 2019Q2

REPORT INFORMATION
  Report Type: Report from Study
  Country: TW (occurrence: TW)
  Receive Date: 20190510
  Receipt Date: 20190621
  Transmission Date: 20190711
  Serious: Yes (Other)
  Sender: FDA-Public Use
  Company Number: TW-UCBSA-2019018408

PATIENT
  Age: 77 Year
  Sex: Male

DRUGS (11)
  1. ACETYLCYSTEINE. [Concomitant]
     Active Substance: ACETYLCYSTEINE
     Indication: RESPIRATORY FAILURE
     Dosage: 600 MILLIGRAM, 2X/DAY (BID)
     Route: 048
     Dates: start: 20190327
  2. PENTOXIFYLLINE. [Concomitant]
     Active Substance: PENTOXIFYLLINE
     Indication: RESPIRATORY FAILURE
     Dosage: 400 MILLIGRAM, ONCE DAILY (QD)
     Route: 048
     Dates: start: 20190327
  3. ZOPICLONE [Concomitant]
     Active Substance: ZOPICLONE
     Indication: RESPIRATORY FAILURE
     Dosage: 7.5 MILLIGRAM, HS
     Route: 048
     Dates: start: 20190327
  4. FAMOTIDINE. [Concomitant]
     Active Substance: FAMOTIDINE
     Indication: RESPIRATORY FAILURE
     Dosage: 20 MILLIGRAM, 2X/DAY (BID)
     Route: 048
     Dates: start: 20190327
  5. CERTOLIZUMAB PEGOL [Suspect]
     Active Substance: CERTOLIZUMAB PEGOL
     Indication: RHEUMATOID ARTHRITIS
     Dosage: 400 MILLIGRAM, EV 2 WEEKS(QOW)
     Route: 058
     Dates: start: 20190218, end: 20190319
  6. BENZBROMARONE [Concomitant]
     Active Substance: BENZBROMARONE
     Indication: RESPIRATORY FAILURE
     Dosage: 50 MILLIGRAM, ONCE DAILY (QD)
     Route: 048
     Dates: start: 20190327
  7. ERYTHROMYCIN. [Concomitant]
     Active Substance: ERYTHROMYCIN
     Indication: RESPIRATORY FAILURE
     Dosage: 250 MILLIGRAM, Q8H
     Route: 048
     Dates: start: 20190327
  8. QUETIAPINE. [Concomitant]
     Active Substance: QUETIAPINE
     Indication: RESPIRATORY FAILURE
     Dosage: 25 MILLIGRAM, 2X/DAY (BID)
     Route: 048
     Dates: start: 20190327
  9. MORPHINE [Concomitant]
     Active Substance: MORPHINE
     Indication: RESPIRATORY FAILURE
     Dosage: 10 MILLIGRAM, PRNQ4
     Route: 030
  10. IPRATROPIUM [Concomitant]
     Active Substance: IPRATROPIUM
     Indication: RESPIRATORY FAILURE
     Dosage: 0.5 MILLIGRAM, EVERY 8 HOURS
     Dates: start: 20190327
  11. METHYLPREDNISOLONE. [Concomitant]
     Active Substance: METHYLPREDNISOLONE
     Indication: RESPIRATORY FAILURE
     Dosage: 4 MILLIGRAM, 2X/DAY (BID)
     Route: 048
     Dates: start: 20190327

REACTIONS (3)
  - Sinus tachycardia [Unknown]
  - Pulmonary fibrosis [Unknown]
  - Metabolic acidosis [Unknown]

NARRATIVE: CASE EVENT DATE: 20190327
